FAERS Safety Report 16760529 (Version 2)
Quarter: 2019Q4

REPORT INFORMATION
  Report Type: Spontaneous
  Country: CN (occurrence: CN)
  Receive Date: 20190830
  Receipt Date: 20191201
  Transmission Date: 20200122
  Serious: Yes (Hospitalization)
  Sender: FDA-Public Use
  Company Number: CN-ASTRAZENECA-2019SE67037

PATIENT
  Age: 24201 Day
  Sex: Male
  Weight: 63 kg

DRUGS (2)
  1. SEROQUEL [Suspect]
     Active Substance: QUETIAPINE FUMARATE
     Indication: MENTAL DISORDER
     Route: 048
     Dates: start: 20190401, end: 20190410
  2. SEROQUEL [Suspect]
     Active Substance: QUETIAPINE FUMARATE
     Indication: MENTAL DISORDER
     Route: 048
     Dates: start: 20190327, end: 20190401

REACTIONS (5)
  - Musculoskeletal stiffness [Unknown]
  - Somnolence [Recovered/Resolved]
  - Extrapyramidal disorder [Recovering/Resolving]
  - Torticollis [Recovered/Resolved]
  - Loss of personal independence in daily activities [Recovering/Resolving]

NARRATIVE: CASE EVENT DATE: 20190409
